FAERS Safety Report 7210881-4 (Version None)
Quarter: 2011Q1

REPORT INFORMATION
  Report Type: 
  Country: None (occurrence: None)
  Receive Date: 20110105
  Receipt Date: 20101213
  Transmission Date: 20110831
  Serious: No
  Sender: FDA-Public Use
  Company Number: US-B.I. PHARMACEUTICALS,INC./RIDGEFIELD-2010-BP-14469BP

PATIENT
  Age: 77 Year
  Sex: Male

DRUGS (4)
  1. DILTIAZEM [Concomitant]
     Indication: HYPERTENSION
     Dosage: 120 MG
     Route: 048
  2. OXYGEN [Concomitant]
     Route: 045
  3. PRADAXA [Suspect]
     Indication: ATRIAL FIBRILLATION
     Dosage: 300 MG
     Route: 048
     Dates: start: 20101101
  4. FISH OIL [Concomitant]
     Route: 048

REACTIONS (1)
  - SENSITIVITY OF TEETH [None]
